FAERS Safety Report 17095944 (Version 5)
Quarter: 2021Q4

REPORT INFORMATION
  Report Type: Report from Study
  Country: None (occurrence: DM)
  Receive Date: 20191202
  Receipt Date: 20211008
  Transmission Date: 20220303
  Serious: Yes (Hospitalization, Other)
  Sender: FDA-Public Use
  Company Number: DO-ABBVIE-19K-279-3005711-00

PATIENT
  Age: 23 Year
  Sex: Male
  Weight: 77.18 kg

DRUGS (1)
  1. HUMIRA [Suspect]
     Active Substance: ADALIMUMAB
     Indication: Crohn^s disease
     Route: 058
     Dates: start: 20170510, end: 20191030

REACTIONS (10)
  - Thrombocytosis [Recovering/Resolving]
  - Anaemia [Recovering/Resolving]
  - Influenza [Recovering/Resolving]
  - Pulmonary tuberculosis [Recovered/Resolved]
  - Amoebic dysentery [Recovering/Resolving]
  - Tuberculosis [Unknown]
  - Lung disorder [Recovering/Resolving]
  - Pallor [Recovering/Resolving]
  - Nephrolithiasis [Recovering/Resolving]
  - Influenza like illness [Recovered/Resolved]

NARRATIVE: CASE EVENT DATE: 20190101
